FAERS Safety Report 13332225 (Version 1)
Quarter: 2017Q1

REPORT INFORMATION
  Report Type: Spontaneous
  Country: US (occurrence: US)
  Receive Date: 20170314
  Receipt Date: 20170314
  Transmission Date: 20170428
  Serious: No
  Sender: FDA-Public Use
  Company Number: US-JNJFOC-20170305271

PATIENT
  Age: 90 Year
  Sex: Female
  Weight: 63.5 kg

DRUGS (3)
  1. TYLENOL EXTRA STRENGTH [Suspect]
     Active Substance: ACETAMINOPHEN
     Indication: ARTHRITIS
     Route: 048
     Dates: start: 2017, end: 20170217
  2. CENTRUM [Concomitant]
     Active Substance: VITAMINS
     Indication: GENERAL PHYSICAL CONDITION
     Dosage: 1 DAY YEARS
     Route: 065
  3. VITAMIN B [Concomitant]
     Active Substance: VITAMIN B
     Indication: GENERAL PHYSICAL CONDITION
     Dosage: 1 DAY, YEARS
     Route: 065

REACTIONS (2)
  - Drug effect incomplete [Unknown]
  - Insomnia [Recovered/Resolved]

NARRATIVE: CASE EVENT DATE: 2017
